FAERS Safety Report 10677072 (Version 3)
Quarter: 2015Q1

REPORT INFORMATION
  Report Type: Spontaneous
  Country: GB (occurrence: GB)
  Receive Date: 20141226
  Receipt Date: 20150213
  Transmission Date: 20150720
  Serious: Yes (Other)
  Sender: FDA-Public Use
  Company Number: GB-BAYER-2014-186496

PATIENT
  Age: 66 Year
  Sex: Female
  Weight: 84 kg

DRUGS (5)
  1. ACETYLSALICYLIC ACID (} 100 MG) [Suspect]
     Active Substance: ASPIRIN
     Dosage: UNK
     Route: 065
     Dates: end: 20141031
  2. PRAVASTATIN [Suspect]
     Active Substance: PRAVASTATIN\PRAVASTATIN SODIUM
     Dosage: UNK
     Route: 065
     Dates: end: 20141031
  3. ATENOLOL. [Suspect]
     Active Substance: ATENOLOL
     Dosage: UNK
     Route: 065
     Dates: end: 20141031
  4. BENDROFLUMETHIAZIDE [Suspect]
     Active Substance: BENDROFLUMETHIAZIDE
     Dosage: UNK
     Route: 065
     Dates: end: 20141031
  5. METFORMIN HYDROCHLORIDE. [Suspect]
     Active Substance: METFORMIN HYDROCHLORIDE
     Dosage: UNK
     Route: 065
     Dates: end: 20141031

REACTIONS (6)
  - Monoclonal B-cell lymphocytosis [Unknown]
  - Adverse event [Unknown]
  - Chronic lymphocytic leukaemia [Unknown]
  - Diabetes mellitus [Unknown]
  - Alopecia [Unknown]
  - Adverse drug reaction [Unknown]

NARRATIVE: CASE EVENT DATE: 2014
